FAERS Safety Report 20528754 (Version 3)
Quarter: 2022Q1

REPORT INFORMATION
  Report Type: Report from Study
  Country: JP (occurrence: JP)
  Receive Date: 20220228
  Receipt Date: 20220317
  Transmission Date: 20220423
  Serious: Yes (Hospitalization, Other)
  Sender: FDA-Public Use
  Company Number: JP-NOVARTISPH-NVSJ2022JP002190

PATIENT
  Age: 64 Year
  Sex: Male
  Weight: 43 kg

DRUGS (27)
  1. SIPONIMOD [Suspect]
     Active Substance: SIPONIMOD
     Indication: Secondary progressive multiple sclerosis
     Dosage: 2 MG
     Route: 048
     Dates: start: 20151125, end: 20211223
  2. SIPONIMOD [Suspect]
     Active Substance: SIPONIMOD
     Indication: Secondary progressive multiple sclerosis
     Dosage: CODE NOT BROKEN
     Route: 048
     Dates: start: 20140827, end: 20151111
  3. INVESTIGATIONAL PRODUCT [Suspect]
     Active Substance: INVESTIGATIONAL PRODUCT
     Indication: Secondary progressive multiple sclerosis
     Dosage: CODE NOT BROKEN
     Route: 048
     Dates: start: 20140827, end: 20151111
  4. PLACEBO [Suspect]
     Active Substance: UNSPECIFIED INGREDIENT
     Indication: Secondary progressive multiple sclerosis
     Dosage: CODE NOT BROKEN
     Route: 048
     Dates: start: 20140827, end: 20151111
  5. CEFEPIME HYDROCHLORIDE [Suspect]
     Active Substance: CEFEPIME HYDROCHLORIDE
     Indication: Prophylaxis
     Dosage: 1 G, BID
     Route: 042
     Dates: start: 20211217, end: 20211222
  6. LEMBOREXANT [Suspect]
     Active Substance: LEMBOREXANT
     Indication: Insomnia
     Dosage: 5 MG, QD
     Route: 065
     Dates: start: 20211221, end: 20211223
  7. LANSOPRAZOLE [Suspect]
     Active Substance: LANSOPRAZOLE
     Indication: Endoscopy upper gastrointestinal tract
     Dosage: 30 MG, BID
     Route: 042
     Dates: start: 20211221, end: 20211224
  8. RIVOTRIL [Concomitant]
     Active Substance: CLONAZEPAM
     Indication: Multiple sclerosis
     Dosage: 1.5 MG, QD
     Route: 065
     Dates: start: 20211004
  9. LIVALO [Concomitant]
     Active Substance: PITAVASTATIN CALCIUM
     Indication: Dyslipidaemia
     Dosage: 1 MG, QD
     Route: 065
     Dates: start: 20211217, end: 20211225
  10. HERBALS [Concomitant]
     Active Substance: HERBALS
     Indication: Insomnia
     Dosage: 2.5 G, TID
     Route: 065
     Dates: start: 20210603
  11. SODIUM FERROUS CITRATE [Concomitant]
     Active Substance: SODIUM FERROUS CITRATE
     Indication: Iron deficiency anaemia
     Dosage: 941.8 MG, BID
     Route: 065
     Dates: start: 20200129, end: 20220112
  12. SODIUM FERROUS CITRATE [Concomitant]
     Active Substance: SODIUM FERROUS CITRATE
     Dosage: 1569.7 MG
     Route: 065
     Dates: start: 20220113
  13. MIYA-BM [Concomitant]
     Active Substance: CLOSTRIDIUM BUTYRICUM SPORES STRAIN M-55
     Indication: Constipation
     Dosage: 1 G, BID
     Route: 065
     Dates: start: 20211216
  14. LEVETIRACETAM [Concomitant]
     Active Substance: LEVETIRACETAM
     Indication: Epilepsy
     Dosage: 500 MG, BID
     Route: 065
     Dates: start: 20211216
  15. AMLODIPINE [Concomitant]
     Active Substance: AMLODIPINE BESYLATE
     Indication: Hypertension
     Dosage: 5 MG, QD
     Route: 065
     Dates: start: 20211009
  16. SEROQUEL [Concomitant]
     Active Substance: QUETIAPINE FUMARATE
     Indication: Restlessness
     Dosage: 25 MG, QD
     Route: 065
     Dates: start: 20211217
  17. MAGNESIUM OXIDE [Concomitant]
     Active Substance: MAGNESIUM OXIDE
     Indication: Constipation
     Dosage: 1500 MG, BID
     Route: 065
     Dates: start: 20210323, end: 20220112
  18. MAGNESIUM OXIDE [Concomitant]
     Active Substance: MAGNESIUM OXIDE
     Dosage: 1000 MG
     Route: 065
     Dates: start: 20220113
  19. GLYCERIN [Concomitant]
     Active Substance: GLYCERIN
     Indication: Constipation
     Dosage: 60 ML, PRN
     Route: 054
     Dates: start: 20180221
  20. ROXITHROMYCIN [Concomitant]
     Active Substance: ROXITHROMYCIN
     Indication: Pneumonia aspiration
     Dosage: 150 MG, QD
     Route: 065
     Dates: start: 20211009
  21. MOVICOL [Concomitant]
     Active Substance: POLYETHYLENE GLYCOL 3350\POTASSIUM CHLORIDE\SODIUM BICARBONATE\SODIUM CHLORIDE
     Indication: Constipation
     Dosage: 6.5625 G/QD
     Route: 065
     Dates: start: 20210415
  22. AMINO ACIDS\DEXTROSE\ELECTROLYTES NOS\VITAMINS [Concomitant]
     Active Substance: AMINO ACIDS\DEXTROSE\ELECTROLYTES NOS\VITAMINS
     Indication: Prophylaxis
     Dosage: 500 ML, TID
     Route: 042
     Dates: start: 20211216, end: 20211227
  23. IMIDAPRIL [Concomitant]
     Active Substance: IMIDAPRIL
     Indication: Hypertension
     Dosage: 5 MG, QD
     Route: 065
     Dates: start: 20211217
  24. INDACATEROL [Concomitant]
     Active Substance: INDACATEROL
     Indication: Emphysema
     Dosage: 1050 UG, QD
     Route: 055
     Dates: start: 20210222
  25. ZOLPIDEM TARTRATE [Concomitant]
     Active Substance: ZOLPIDEM TARTRATE
     Indication: Insomnia
     Dosage: 5 MG, QD
     Route: 065
     Dates: start: 20201203, end: 20211220
  26. LEVOFLOXACIN [Concomitant]
     Active Substance: LEVOFLOXACIN
     Indication: Prophylaxis
     Dosage: 500 MG, QD
     Route: 065
     Dates: start: 20201214, end: 20211218
  27. CEFMETAZOLE SODIUM [Concomitant]
     Active Substance: CEFMETAZOLE SODIUM
     Indication: Prophylaxis
     Dosage: 1 G, BID
     Route: 041
     Dates: start: 20211214, end: 20211217

REACTIONS (2)
  - Colon cancer [Recovering/Resolving]
  - Hepatic function abnormal [Recovered/Resolved]

NARRATIVE: CASE EVENT DATE: 20211216
